FAERS Safety Report 8495168 (Version 6)
Quarter: 2013Q2

REPORT INFORMATION
  Report Type: Report from Study
  Country: IE (occurrence: IE)
  Receive Date: 20120405
  Receipt Date: 20130628
  Transmission Date: 20140414
  Serious: Yes (Hospitalization, Other)
  Sender: FDA-Public Use
  Company Number: IE-ABBOTT-12P-229-0920917-00

PATIENT
  Age: 40 Year
  Sex: Male
  Weight: 76.27 kg

DRUGS (6)
  1. HUMIRA [Suspect]
     Indication: RHEUMATOID ARTHRITIS
     Route: 058
     Dates: start: 20110104
  2. PREDNISOLONE [Concomitant]
     Indication: RHEUMATOID ARTHRITIS
     Route: 048
     Dates: start: 201011
  3. DIFENE [Concomitant]
     Indication: PRODUCT USED FOR UNKNOWN INDICATION
  4. BISOPROLOL [Concomitant]
     Indication: PRODUCT USED FOR UNKNOWN INDICATION
  5. METHOTREXATE [Concomitant]
     Dates: start: 2003
  6. METHOTREXATE [Concomitant]
     Dates: start: 200910, end: 201001

REACTIONS (6)
  - Dyspnoea [Recovering/Resolving]
  - Chest pain [Recovered/Resolved]
  - Sarcoidosis [Unknown]
  - Cardiac murmur [Not Recovered/Not Resolved]
  - Lymphadenopathy mediastinal [Unknown]
  - Hypersensitivity [Unknown]
